FAERS Safety Report 10497541 (Version 2)
Quarter: 2014Q4

REPORT INFORMATION
  Report Type: Spontaneous
  Country: JP (occurrence: None)
  Receive Date: 20141002
  Receipt Date: 20141022
  Transmission Date: 20150528
  Serious: Yes (Other)
  Sender: FDA-Public Use
  Company Number: JP-20140320

PATIENT
  Age: 3 Year
  Sex: Male

DRUGS (8)
  1. DEHYDRATED ETHANOL [Suspect]
     Active Substance: ALCOHOL
     Indication: THERAPEUTIC EMBOLISATION
     Route: 013
  2. THIAMYLAL [Concomitant]
     Active Substance: THIAMYLAL
  3. NBCA (N-BUTYL-2-CYANOACRYLATE) [Suspect]
     Active Substance: ENBUCRILATE
     Route: 013
  4. FENTANYL. [Concomitant]
     Active Substance: FENTANYL
  5. ROCURONIUM [Concomitant]
     Active Substance: ROCURONIUM BROMIDE
  6. NBCA (N-BUTYL-2-CYANOACRYLATE) [Suspect]
     Active Substance: ENBUCRILATE
     Indication: THERAPEUTIC EMBOLISATION
     Route: 013
  7. LIPIODOL ULTRA-FLUIDE [Suspect]
     Active Substance: ETHIODIZED OIL
     Indication: THERAPEUTIC EMBOLISATION
     Route: 013
  8. SEVOFLURANE. [Concomitant]
     Active Substance: SEVOFLURANE

REACTIONS (2)
  - Product use issue [None]
  - Ventricular arrhythmia [None]
